FAERS Safety Report 9634096 (Version 1)
Quarter: 2013Q4

REPORT INFORMATION
  Report Type: Spontaneous
  Country: CN (occurrence: CN)
  Receive Date: 20131021
  Receipt Date: 20131021
  Transmission Date: 20140711
  Serious: Yes (Hospitalization)
  Sender: FDA-Public Use
  Company Number: CN-MPIJNJ-2013JNJ000677

PATIENT
  Sex: 0

DRUGS (3)
  1. VELCADE [Suspect]
     Indication: PLASMA CELL MYELOMA
     Dosage: 1.75 MG/M2, UNK
     Route: 065
     Dates: start: 20130801, end: 201308
  2. REVLIMID [Suspect]
     Indication: PLASMA CELL MYELOMA
     Dosage: 10 MG, UNK
     Route: 048
     Dates: start: 20130620, end: 201308
  3. DEXAMETHASONE [Suspect]
     Indication: PLASMA CELL MYELOMA
     Dosage: 20 MG, 1/WEEK
     Route: 042
     Dates: start: 20130620, end: 201308

REACTIONS (1)
  - Lower respiratory tract infection fungal [Not Recovered/Not Resolved]
